FAERS Safety Report 8587648-8 (Version None)
Quarter: 2012Q3

REPORT INFORMATION
  Report Type: 
  Country: None (occurrence: None)
  Receive Date: 20120812
  Receipt Date: 20120808
  Transmission Date: 20120928
  Serious: Yes (Other)
  Sender: FDA-Public Use
  Company Number: ES-AMGEN-ESPSP2012035231

PATIENT
  Age: 42 Year
  Sex: Male

DRUGS (5)
  1. CINACALCET HYDROCHLORIDE [Suspect]
     Indication: HYPERCALCAEMIA
     Dosage: 30 MG, Q8H
  2. FUROSEMIDE [Concomitant]
     Dosage: UNK UNK, QD
  3. CINACALCET HYDROCHLORIDE [Suspect]
     Dosage: 90 MG, Q6H
  4. ENALAPRIL MALEATE [Concomitant]
     Dosage: UNK
  5. OMEPRAZOLE [Concomitant]
     Dosage: UNK

REACTIONS (3)
  - HYPERCALCAEMIA [None]
  - PARATHYROID TUMOUR BENIGN [None]
  - DRUG INEFFECTIVE [None]
